FAERS Safety Report 21927048 (Version 2)
Quarter: 2023Q1

REPORT INFORMATION
  Report Type: Spontaneous
  Country: US (occurrence: US)
  Receive Date: 20230130
  Receipt Date: 20230308
  Transmission Date: 20230418
  Serious: Yes (Hospitalization)
  Sender: FDA-Public Use
  Company Number: US-002147023-NVSC2023US016756

PATIENT
  Sex: Female
  Weight: 3.56 kg

DRUGS (8)
  1. BETAMETHASONE [Suspect]
     Active Substance: BETAMETHASONE
     Indication: Foetal exposure during pregnancy
     Dosage: MATERNAL EXPOSURE DURING PREGNANCY: UNK 2 CONSECUTIVE DAYS
     Route: 064
  2. FORTEO [Suspect]
     Active Substance: TERIPARATIDE
     Indication: Foetal exposure during pregnancy
     Dosage: MATERNAL EXPOSURE DURING PREGNANCY:: 15 MCG DAILY DELIVERED AS A SINGLE BASAL INFUSION RATE OVER 24
     Route: 064
     Dates: start: 2012
  3. FORTEO [Suspect]
     Active Substance: TERIPARATIDE
     Dosage: MATERNAL EXPOSURE DURING PREGNANCY:: INCREASED OVER THE SUBSEQUENT 7 YEARS TO 26 MCG/DAY
     Route: 064
  4. FORTEO [Suspect]
     Active Substance: TERIPARATIDE
     Dosage: MATERNAL EXPOSURE DURING PREGNANCY:: 30 MCG, QD, DELIVERED AS A SINGLE BASAL INFUSION RATE
     Route: 064
  5. FORTEO [Suspect]
     Active Substance: TERIPARATIDE
     Dosage: MATERNAL EXPOSURE DURING PREGNANCY:: 27 MCG, QD, DECREASED TRANSIENTLY IN THE FIRST MONTH
     Route: 064
  6. FORTEO [Suspect]
     Active Substance: TERIPARATIDE
     Dosage: MATERNAL EXPOSURE DURING PREGNANCY:: 28 MCG, QD, FOR THE REMAINDER OF THE PREGNANCY
     Route: 064
  7. FORTEO [Suspect]
     Active Substance: TERIPARATIDE
     Dosage: MATERNAL DOSE: 12.5 MCG BOLUS INFUSION VIA THE PUMP IN ADDITION TO CALCIUM SUPPLEMENTATION
     Route: 064
  8. FORTEO [Suspect]
     Active Substance: TERIPARATIDE
     Dosage: UNK
     Route: 063
     Dates: end: 2021

REACTIONS (3)
  - Transient tachypnoea of the newborn [Recovered/Resolved]
  - Use of accessory respiratory muscles [Recovered/Resolved]
  - Foetal exposure during pregnancy [Unknown]
